FAERS Safety Report 23961971 (Version 1)
Quarter: 2024Q2

REPORT INFORMATION
  Report Type: Spontaneous
  Country: US (occurrence: US)
  Receive Date: 20240611
  Receipt Date: 20240611
  Transmission Date: 20240715
  Serious: No
  Sender: FDA-Public Use
  Company Number: US-RIGEL Pharmaceuticals, INC-2023FOS000410

PATIENT
  Sex: Female

DRUGS (2)
  1. TAVALISSE [Suspect]
     Active Substance: FOSTAMATINIB
     Indication: Immune thrombocytopenia
     Dosage: 150 MG, BID
     Route: 048
  2. PREDNISONE [Concomitant]
     Active Substance: PREDNISONE
     Indication: Product used for unknown indication
     Dosage: UNK

REACTIONS (10)
  - Blood cholesterol increased [Unknown]
  - Glucose tolerance impaired [Unknown]
  - Hepatic steatosis [Unknown]
  - Weight increased [Unknown]
  - Weight decreased [Unknown]
  - Anxiety [Unknown]
  - Stress at work [Unknown]
  - Abdominal pain upper [Unknown]
  - Fatigue [Unknown]
  - Liver function test increased [Unknown]

NARRATIVE: CASE EVENT DATE: 20220101
